FAERS Safety Report 8815945 (Version 1)
Quarter: 2012Q4

REPORT INFORMATION
  Report Type: 
  Country: US (occurrence: US)
  Receive Date: 20120928
  Receipt Date: 20120928
  Transmission Date: 20130627
  Serious: Yes (Death)
  Sender: FDA-Public Use
  Company Number: US-ROCHE-1130036

PATIENT
  Sex: Female

DRUGS (10)
  1. HERCEPTIN [Suspect]
     Indication: BREAST CANCER
     Dosage: Loading dose
     Route: 065
  2. HERCEPTIN [Suspect]
     Dosage: maintenance dose
     Route: 065
  3. HERCEPTIN [Suspect]
     Route: 065
  4. HERCEPTIN [Suspect]
     Route: 065
  5. HERCEPTIN [Suspect]
     Route: 065
  6. HERCEPTIN [Suspect]
     Route: 065
  7. HERCEPTIN [Suspect]
     Route: 065
  8. HERCEPTIN [Suspect]
     Route: 065
  9. HERCEPTIN [Suspect]
     Route: 065
  10. XELODA [Concomitant]
     Route: 065

REACTIONS (1)
  - Death [Fatal]
